FAERS Safety Report 24593343 (Version 5)
Quarter: 2025Q1

REPORT INFORMATION
  Report Type: Spontaneous
  Country: SE (occurrence: SE)
  Receive Date: 20241108
  Receipt Date: 20250110
  Transmission Date: 20250409
  Serious: Yes (Other)
  Sender: VELOXIS PHARMACEUTICALS
  Company Number: SE-VELOXIS PHARMACEUTICALS, INC.-2024-VEL-00589

PATIENT
  Age: 26 Year
  Sex: Female

DRUGS (2)
  1. TACROLIMUS [Suspect]
     Active Substance: TACROLIMUS
     Indication: Prophylaxis against transplant rejection
  2. PROCYSBI [Suspect]
     Active Substance: CYSTEAMINE BITARTRATE
     Indication: Cystinosis
     Route: 048
     Dates: start: 2021

REACTIONS (12)
  - Colitis [Not Recovered/Not Resolved]
  - Psychotic symptom [Unknown]
  - Affective disorder [Not Recovered/Not Resolved]
  - Thalamic infarction [Not Recovered/Not Resolved]
  - Renal impairment [Not Recovered/Not Resolved]
  - Clostridium colitis [Not Recovered/Not Resolved]
  - Cytomegalovirus colitis [Not Recovered/Not Resolved]
  - General physical health deterioration [Not Recovered/Not Resolved]
  - Cystinosis [Not Recovered/Not Resolved]
  - Condition aggravated [Not Recovered/Not Resolved]
  - Memory impairment [Not Recovered/Not Resolved]
  - Gastrointestinal disorder [Not Recovered/Not Resolved]

NARRATIVE: CASE EVENT DATE: 20230101
